FAERS Safety Report 9780642 (Version 1)
Quarter: 2013Q4

REPORT INFORMATION
  Report Type: Spontaneous
  Country: DE (occurrence: DE)
  Receive Date: 20131224
  Receipt Date: 20131224
  Transmission Date: 20140711
  Serious: Yes (Hospitalization)
  Sender: FDA-Public Use
  Company Number: DE-JNJFOC-20131208609

PATIENT
  Age: 0 Day
  Sex: Male
  Weight: 1.48 kg

DRUGS (2)
  1. RISPERDAL [Suspect]
     Indication: PSYCHOTIC DISORDER
     Route: 064
     Dates: end: 20120921
  2. HALDOL [Suspect]
     Indication: PSYCHOTIC DISORDER
     Route: 064
     Dates: start: 20120922

REACTIONS (2)
  - Premature baby [Unknown]
  - Foetal exposure during pregnancy [Recovered/Resolved]
